FAERS Safety Report 9974269 (Version 1)
Quarter: 2014Q1

REPORT INFORMATION
  Report Type: Report from Study
  Country: US (occurrence: US)
  Receive Date: 20140306
  Receipt Date: 20140306
  Transmission Date: 20141002
  Serious: No
  Sender: FDA-Public Use
  Company Number: US-ABBVIE-13P-163-1158801-00

PATIENT
  Age: 51 Year
  Sex: Female
  Weight: 102.6 kg

DRUGS (17)
  1. HUMIRA [Suspect]
     Indication: CROHN^S DISEASE
     Dates: start: 20130618
  2. PENTASA [Concomitant]
     Indication: CROHN^S DISEASE
  3. TRAZODONE [Concomitant]
     Indication: INSOMNIA
  4. COMBIVENT [Concomitant]
     Indication: CHRONIC OBSTRUCTIVE PULMONARY DISEASE
     Route: 055
  5. OXYCODONE [Concomitant]
     Indication: BACK PAIN
  6. MULTIVITAMIN [Concomitant]
     Indication: VITAMIN SUPPLEMENTATION
  7. DICYCLOMINE [Concomitant]
     Indication: MUSCLE SPASMS
  8. PREDNISONE [Concomitant]
     Indication: CROHN^S DISEASE
  9. PROZAC [Concomitant]
     Indication: DEPRESSION
  10. VITAMIN B12 [Concomitant]
     Indication: CROHN^S DISEASE
     Route: 050
  11. PROTONIX [Concomitant]
     Indication: GASTROOESOPHAGEAL REFLUX DISEASE
  12. HYDROCHLOROTHIAZIDE [Concomitant]
     Indication: DIURETIC THERAPY
  13. METOPROLOL [Concomitant]
     Indication: HYPERTENSION
  14. POTASSIUM CHLORIDE [Concomitant]
     Indication: HYPOKALAEMIA
  15. ATIVAN [Concomitant]
     Indication: ANXIETY
  16. PHENERGAN [Concomitant]
     Indication: NAUSEA
     Dosage: AS NEEDED
  17. ZANTAC [Concomitant]
     Indication: GASTROOESOPHAGEAL REFLUX DISEASE

REACTIONS (4)
  - Abdominal hernia [Recovering/Resolving]
  - Nausea [Recovering/Resolving]
  - Vomiting [Recovering/Resolving]
  - Fatigue [Recovering/Resolving]
